FAERS Safety Report 9643375 (Version 2)
Quarter: 2013Q4

REPORT INFORMATION
  Report Type: Report from Study
  Country: US (occurrence: US)
  Receive Date: 20131024
  Receipt Date: 20131219
  Transmission Date: 20140711
  Serious: Yes (Hospitalization, Other)
  Sender: FDA-Public Use
  Company Number: US-ABBVIE-13P-163-1159525-00

PATIENT
  Age: 75 Year
  Sex: Female

DRUGS (20)
  1. HUMIRA [Suspect]
     Indication: RHEUMATOID ARTHRITIS
     Dates: start: 20040610, end: 201305
  2. SYNTHROID [Concomitant]
     Indication: PRODUCT USED FOR UNKNOWN INDICATION
     Dosage: ALTERNATING WITH 75MG DOSE, BEFORE BREAKFAST
     Dates: start: 19980708
  3. SYNTHROID [Concomitant]
     Dosage: ALTERNATIVE WITH 88MG DOSE, BEFORE BREAKFAST
  4. PREDNISONE [Concomitant]
     Indication: PRODUCT USED FOR UNKNOWN INDICATION
     Dosage: 7MG AND 6MG DOSE ALTERNATING EVERY OTHER DAY
     Dates: start: 19990629
  5. CREON [Concomitant]
     Indication: PRODUCT USED FOR UNKNOWN INDICATION
     Dosage: 24MG, 2 CAPS, 3 TIMES DAILY, WITH MEALS
     Dates: start: 20030714
  6. AMBIEN [Concomitant]
     Indication: INSOMNIA
     Dosage: AT BEDTIME
     Dates: start: 20021217
  7. TOPROL [Concomitant]
     Indication: PRODUCT USED FOR UNKNOWN INDICATION
     Dates: start: 201212
  8. LOVAZA [Concomitant]
     Indication: PRODUCT USED FOR UNKNOWN INDICATION
     Dosage: 2 CAPSULES BEFORE BREAKFAST, 2 CAPS AT BEDTIME
     Dates: start: 20070718
  9. STOOL SOFTENER [Concomitant]
     Indication: PRODUCT USED FOR UNKNOWN INDICATION
     Dosage: 1 TAB AT BREAKFAST AND 1 TAB AT BEDTIME
     Dates: start: 20070826
  10. UNKNOWN MEDICATION [Concomitant]
     Indication: BLOOD CHOLESTEROL INCREASED
     Dosage: 1 TAB DAILY AT DINNER
     Dates: start: 20130812
  11. FENTANYL [Concomitant]
     Indication: PAIN
     Dates: start: 20060225
  12. NITROSTAT [Concomitant]
     Indication: CHEST PAIN
     Dates: start: 20040824
  13. LIDODERM [Concomitant]
     Indication: SPINAL PAIN
     Dosage: AS NEEDED
     Dates: start: 20080410
  14. CLINDAMYCIN [Concomitant]
     Indication: PRODUCT USED FOR UNKNOWN INDICATION
     Dosage: 2 TABS, 1 HOUR BEFORE DENTAL APPOINTMENTS
  15. HYDROCODONE [Concomitant]
     Indication: PAIN
     Dosage: 7.5/750MG, 1 TAB EVERY 6 HOURS, AS NEEDED
     Dates: start: 20120502
  16. MULTIVITAMIN WITH NO IODINE, NO VITAMIN K OR NO MINERALS [Concomitant]
     Indication: PRODUCT USED FOR UNKNOWN INDICATION
     Dosage: DAILY
  17. CALCIUM [Concomitant]
     Indication: PRODUCT USED FOR UNKNOWN INDICATION
     Dosage: 1 TAB AT BREAKFAST AND 1 TAB AT NIGHT
  18. COUMADIN [Concomitant]
     Indication: PRODUCT USED FOR UNKNOWN INDICATION
  19. XARELTO [Concomitant]
     Indication: THROMBOSIS
     Dates: start: 20130808
  20. BABY ASPIRIN [Concomitant]
     Indication: THROMBOSIS
     Dates: start: 20130909

REACTIONS (22)
  - Foot deformity [Not Recovered/Not Resolved]
  - Loss of consciousness [Not Recovered/Not Resolved]
  - Myocardial infarction [Unknown]
  - Fall [Not Recovered/Not Resolved]
  - Cervical vertebral fracture [Not Recovered/Not Resolved]
  - Pain in extremity [Not Recovered/Not Resolved]
  - Localised infection [Not Recovered/Not Resolved]
  - Blister [Not Recovered/Not Resolved]
  - Impaired healing [Not Recovered/Not Resolved]
  - Dizziness [Unknown]
  - Nocturia [Recovering/Resolving]
  - Herpes zoster [Recovered/Resolved]
  - Herpes zoster [Recovered/Resolved]
  - Herpes zoster [Unknown]
  - Pain [Not Recovered/Not Resolved]
  - Pain in extremity [Not Recovered/Not Resolved]
  - Phantom pain [Not Recovered/Not Resolved]
  - Ulcer haemorrhage [Unknown]
  - Ear infection [Unknown]
  - Infection [Unknown]
  - Diabetes mellitus [Unknown]
  - Peripheral vascular disorder [Unknown]
